FAERS Safety Report 13755545 (Version 3)
Quarter: 2017Q3

REPORT INFORMATION
  Report Type: Spontaneous
  Country: GB (occurrence: GB)
  Receive Date: 20170714
  Receipt Date: 20170825
  Transmission Date: 20171127
  Serious: Yes (Death, Disabling)
  Sender: FDA-Public Use
  Company Number: GB-EXELIXIS-CABO-17009283

PATIENT
  Sex: Male
  Weight: 91 kg

DRUGS (1)
  1. CABOMETYX [Suspect]
     Active Substance: CABOZANTINIB S-MALATE
     Indication: METASTATIC RENAL CELL CARCINOMA
     Dosage: 40 MG, QD
     Route: 048
     Dates: start: 20170328, end: 20170502

REACTIONS (2)
  - Malignant neoplasm progression [Fatal]
  - General physical health deterioration [Unknown]
